FAERS Safety Report 10847364 (Version 1)
Quarter: 2015Q1

REPORT INFORMATION
  Report Type: Spontaneous
  Country: US (occurrence: US)
  Receive Date: 20150220
  Receipt Date: 20150220
  Transmission Date: 20150721
  Serious: No
  Sender: FDA-Public Use
  Company Number: US-PFIZER INC-2015065179

PATIENT
  Age: 58 Year
  Sex: Female
  Weight: 62 kg

DRUGS (3)
  1. VFEND [Suspect]
     Active Substance: VORICONAZOLE
     Indication: FUNGAL INFECTION
     Dosage: 200 MG, 1X/DAY
     Route: 048
     Dates: start: 20150215
  2. NYSTATIN. [Concomitant]
     Active Substance: NYSTATIN
     Dosage: 1 MILLION IU, 4X/DAY
  3. AMPHOTERICIN B. [Concomitant]
     Active Substance: AMPHOTERICIN B
     Dosage: 250 MG, 4X/DAY

REACTIONS (1)
  - Nausea [Not Recovered/Not Resolved]

NARRATIVE: CASE EVENT DATE: 20150215
